FAERS Safety Report 15469082 (Version 1)
Quarter: 2018Q4

REPORT INFORMATION
  Report Type: Spontaneous
  Country: US (occurrence: US)
  Receive Date: 20181001
  Receipt Date: 20181001
  Transmission Date: 20190205
  Serious: No
  Sender: FDA-Public Use
  Company Number: None

PATIENT
  Age: 56 Year
  Sex: Female
  Weight: 133.81 kg

DRUGS (7)
  1. RASUVO [Suspect]
     Active Substance: METHOTREXATE SODIUM
     Indication: RHEUMATOID ARTHRITIS
     Dosage: ?          OTHER DOSE:20MG  0.4ML;OTHER FREQUENCY:1XWEEKLY SAME/TIME;?
     Route: 058
     Dates: start: 201603
  2. REMICADE [Suspect]
     Active Substance: INFLIXIMAB
     Indication: RHEUMATOID ARTHRITIS
     Route: 042
     Dates: start: 201811
  3. REMICADE [Suspect]
     Active Substance: INFLIXIMAB
     Indication: VITAMIN D DEFICIENCY
     Route: 042
     Dates: start: 201811
  4. REMICADE [Suspect]
     Active Substance: INFLIXIMAB
     Indication: RHEUMATOID FACTOR NEGATIVE
     Route: 042
     Dates: start: 201811
  5. RASUVO [Suspect]
     Active Substance: METHOTREXATE SODIUM
     Indication: VITAMIN D DEFICIENCY
  6. RASUVO [Suspect]
     Active Substance: METHOTREXATE SODIUM
  7. RASUVO [Suspect]
     Active Substance: METHOTREXATE SODIUM
     Indication: RHEUMATOID FACTOR NEGATIVE
     Dosage: ?          OTHER DOSE:20MG  0.4ML;OTHER FREQUENCY:1XWEEKLY SAME/TIME;?
     Route: 058
     Dates: start: 201603

REACTIONS (1)
  - Adverse drug reaction [None]
